FAERS Safety Report 7880996-6 (Version None)
Quarter: 2011Q4

REPORT INFORMATION
  Report Type: 
  Country: None (occurrence: None)
  Receive Date: 20111101
  Receipt Date: 20111028
  Transmission Date: 20120403
  Serious: Yes (Hospitalization, Disabling)
  Sender: FDA-Public Use
  Company Number: FR-GILEAD-2011-0046008

PATIENT
  Sex: Female

DRUGS (8)
  1. GANCICLOVIR SODIUM [Concomitant]
  2. TRIZIVIR [Concomitant]
  3. ISENTRESS [Concomitant]
     Indication: HIV INFECTION
     Dosage: UNK
     Dates: start: 20090422
  4. VIRACEPT [Concomitant]
  5. EPIVIR [Concomitant]
  6. VISTIDE [Concomitant]
  7. ZERIT [Concomitant]
  8. TRUVADA [Suspect]
     Indication: HIV INFECTION
     Dosage: UNK
     Dates: start: 20090422

REACTIONS (1)
  - OSTEONECROSIS [None]
